FAERS Safety Report 9371133 (Version 1)
Quarter: 2013Q2

REPORT INFORMATION
  Report Type: Spontaneous
  Country: US (occurrence: None)
  Receive Date: 20130626
  Receipt Date: 20130626
  Transmission Date: 20140414
  Serious: Yes (Other)
  Sender: FDA-Public Use
  Company Number: None

PATIENT
  Age: 44 Year
  Sex: Female
  Weight: 74.39 kg

DRUGS (8)
  1. HALDOL DECANOATE [Suspect]
     Indication: IMPULSIVE BEHAVIOUR
     Route: 030
     Dates: start: 20130530
  2. HALDOL DECANOATE [Suspect]
     Indication: AFFECTIVE DISORDER
     Route: 030
     Dates: start: 20130530
  3. HALDOL DECANOATE [Suspect]
     Route: 030
     Dates: start: 20130530
  4. HALDOL DECANOATE [Suspect]
     Indication: TACHYPHRENIA
     Route: 030
     Dates: start: 20130530
  5. HALDOL DECANOATE [Suspect]
     Route: 030
     Dates: start: 20130530
  6. CLONIDINE [Concomitant]
  7. PERCOCET [Concomitant]
  8. FLEXERIL [Concomitant]

REACTIONS (4)
  - Skin lesion [None]
  - Erythema [None]
  - Pain [None]
  - Treatment noncompliance [None]
